FAERS Safety Report 6442703-3 (Version None)
Quarter: 2009Q4

REPORT INFORMATION
  Report Type: 
  Country: None (occurrence: None)
  Receive Date: 20091112
  Receipt Date: 20091028
  Transmission Date: 20100525
  Serious: Yes (Death)
  Sender: FDA-Public Use
  Company Number: 2009AC000323

PATIENT
  Sex: Male

DRUGS (1)
  1. DIGOXIN [Suspect]
     Indication: CARDIAC FAILURE CONGESTIVE
     Dosage: PO
     Route: 048

REACTIONS (5)
  - COLD SWEAT [None]
  - HEART RATE IRREGULAR [None]
  - MULTIPLE INJURIES [None]
  - PALPITATIONS [None]
  - VISUAL IMPAIRMENT [None]
